FAERS Safety Report 7686127-X (Version None)
Quarter: 2011Q3

REPORT INFORMATION
  Report Type: 
  Country: None (occurrence: None)
  Receive Date: 20110816
  Receipt Date: 20110807
  Transmission Date: 20111222
  Serious: Yes (Other)
  Sender: FDA-Public Use
  Company Number: PHHY2011ES71515

PATIENT
  Age: 39 Year
  Sex: Female

DRUGS (2)
  1. ECT (ELECTRO CONVULSIVE THERAPY) [Suspect]
  2. CLOZAPINE [Suspect]
     Indication: SCHIZOPHRENIA
     Dosage: 450 MG, QD

REACTIONS (4)
  - ANTIPSYCHOTIC DRUG LEVEL ABOVE THERAPEUTIC [None]
  - HEADACHE [None]
  - COGNITIVE DISORDER [None]
  - DRUG INEFFECTIVE [None]
